FAERS Safety Report 9390444 (Version 2)
Quarter: 2013Q3

REPORT INFORMATION
  Report Type: Spontaneous
  Country: IL (occurrence: IL)
  Receive Date: 20130709
  Receipt Date: 20130718
  Transmission Date: 20140515
  Serious: Yes (Other)
  Sender: FDA-Public Use
  Company Number: IL-AMGEN-ISRSP2013047328

PATIENT
  Age: 77 Year
  Sex: Female
  Weight: 84 kg

DRUGS (2)
  1. PROLIA [Suspect]
     Indication: PRODUCT USED FOR UNKNOWN INDICATION
     Dosage: UNK
     Route: 065
  2. CALCIUM + VITAMIN D                /01483701/ [Concomitant]
     Dosage: UNK

REACTIONS (3)
  - Osteonecrosis of jaw [Unknown]
  - Gingivitis [Unknown]
  - Wound [Unknown]
